FAERS Safety Report 8358373-3 (Version None)
Quarter: 2012Q2

REPORT INFORMATION
  Report Type: 
  Country: None (occurrence: None)
  Receive Date: 20120514
  Receipt Date: 20110512
  Transmission Date: 20120825
  Serious: No
  Sender: FDA-Public Use
  Company Number: US-ALEXION-A201100691

PATIENT
  Sex: Female

DRUGS (3)
  1. METFORMIN HCL [Concomitant]
  2. JANUMET [Concomitant]
     Dosage: 50/500 MG BID
  3. SOLIRIS [Suspect]
     Indication: PAROXYSMAL NOCTURNAL HAEMOGLOBINURIA
     Dosage: 900 MG Q2W
     Route: 042
     Dates: start: 20080326

REACTIONS (2)
  - WEIGHT DECREASED [None]
  - DECREASED APPETITE [None]
